FAERS Safety Report 8831598 (Version 1)
Quarter: 2012Q4

REPORT INFORMATION
  Report Type: 
  Country: US (occurrence: US)
  Receive Date: 20121009
  Receipt Date: 20121009
  Transmission Date: 20130627
  Serious: Yes (Death)
  Sender: FDA-Public Use
  Company Number: US-GLAXOSMITHKLINE-A0996196A

PATIENT
  Age: 70 Year
  Sex: Female

DRUGS (20)
  1. TYKERB [Suspect]
     Indication: PRODUCT USED FOR UNKNOWN INDICATION
     Dosage: 250MG See dosage text
     Route: 048
  2. HERCEPTIN [Concomitant]
  3. ZOFRAN [Concomitant]
  4. PRILOSEC [Concomitant]
  5. ATENOLOL [Concomitant]
  6. LOVASTATIN [Concomitant]
  7. LISINOPRIL [Concomitant]
  8. PROCHLOROPERAZINE [Concomitant]
  9. POTASSIUM [Concomitant]
  10. CELEXA [Concomitant]
  11. CALCIUM + D [Concomitant]
  12. ASPIRIN LOW DOSE [Concomitant]
  13. VITAMIN E [Concomitant]
  14. FISH OIL [Concomitant]
  15. GLUCOSAMINE [Concomitant]
  16. MULTIVITAMIN [Concomitant]
  17. ZOMETA [Concomitant]
  18. TYLENOL [Concomitant]
  19. IBUPROFEN [Concomitant]
  20. XGEVA [Concomitant]

REACTIONS (1)
  - Death [Fatal]
